FAERS Safety Report 8962552 (Version 1)
Quarter: 2012Q4

REPORT INFORMATION
  Report Type: 
  Country: GB (occurrence: GB)
  Receive Date: 20121214
  Receipt Date: 20121214
  Transmission Date: 20130627
  Serious: Yes (Other)
  Sender: FDA-Public Use
  Company Number: PHFR2012GB005250

PATIENT
  Age: 36 Year
  Sex: Male

DRUGS (2)
  1. CLOZARIL [Suspect]
     Indication: SCHIZOPHRENIA
     Route: 048
     Dates: start: 20121001
  2. CLOZARIL [Suspect]
     Dosage: 25 mg
     Route: 048
     Dates: end: 20121003

REACTIONS (12)
  - Paralysis [Unknown]
  - Tachycardia [Unknown]
  - Heart rate increased [Unknown]
  - Sedation [Unknown]
  - Infection [Recovered/Resolved]
  - Arthralgia [Unknown]
  - Influenza like illness [Unknown]
  - Hyperhidrosis [Recovered/Resolved]
  - White blood cell count increased [Recovered/Resolved]
  - Neutrophil count increased [Unknown]
  - Nausea [Recovered/Resolved]
  - Pyrexia [Unknown]
